FAERS Safety Report 11329807 (Version 11)
Quarter: 2021Q3

REPORT INFORMATION
  Report Type: Report from Study
  Country: CA (occurrence: CA)
  Receive Date: 20150803
  Receipt Date: 20210929
  Transmission Date: 20211014
  Serious: Yes (Other)
  Sender: FDA-Public Use
  Company Number: PHHY2015CA051593

PATIENT
  Sex: Male

DRUGS (4)
  1. GLEEVEC [Suspect]
     Active Substance: IMATINIB MESYLATE
     Dosage: UNK
     Route: 048
     Dates: end: 202010
  2. GLEEVEC [Suspect]
     Active Substance: IMATINIB MESYLATE
     Indication: CHRONIC MYELOID LEUKAEMIA
     Dosage: 600 MG, QD
     Route: 048
     Dates: start: 200207
  3. SYNTHROID [Concomitant]
     Active Substance: LEVOTHYROXINE SODIUM
     Indication: HYPOTHYROIDISM
     Dosage: 50 MCG/ML, QD
     Route: 065
  4. GLEEVEC [Suspect]
     Active Substance: IMATINIB MESYLATE
     Dosage: 400 MG, QD
     Route: 048
     Dates: start: 200207

REACTIONS (13)
  - Graft versus host disease [Unknown]
  - Muscle spasms [Recovering/Resolving]
  - Haemoglobin decreased [Recovering/Resolving]
  - Thyroid function test abnormal [Unknown]
  - Intestinal obstruction [Unknown]
  - Dry skin [Unknown]
  - Radiation injury [Unknown]
  - Urine odour abnormal [Unknown]
  - Penis disorder [Not Recovered/Not Resolved]
  - Diarrhoea [Recovered/Resolved]
  - Food interaction [Unknown]
  - Eczema [Unknown]
  - Feeling abnormal [Unknown]
